APPROVED DRUG PRODUCT: DEFERASIROX
Active Ingredient: DEFERASIROX
Strength: 90MG
Dosage Form/Route: GRANULE;ORAL
Application: A215137 | Product #001 | TE Code: AB
Applicant: AUROBINDO PHARMA LTD
Approved: Sep 8, 2025 | RLD: No | RS: No | Type: RX